FAERS Safety Report 16705104 (Version 1)
Quarter: 2019Q3

REPORT INFORMATION
  Report Type: Spontaneous
  Country: US (occurrence: US)
  Receive Date: 20190815
  Receipt Date: 20190815
  Transmission Date: 20191004
  Serious: No
  Sender: FDA-Public Use
  Company Number: US-JNJFOC-20190812314

PATIENT
  Sex: Female

DRUGS (1)
  1. WOMENS ROGAINE [Suspect]
     Active Substance: MINOXIDIL
     Indication: ALOPECIA
     Dosage: FROM HAIR DRESSER DAILY
     Route: 061

REACTIONS (2)
  - Therapeutic product effect incomplete [Unknown]
  - Hair colour changes [Not Recovered/Not Resolved]
